FAERS Safety Report 5566521-3 (Version None)
Quarter: 2007Q4

REPORT INFORMATION
  Report Type: 
  Country: None (occurrence: None)
  Receive Date: 20071219
  Receipt Date: 20071207
  Transmission Date: 20080405
  Serious: Yes (Other)
  Sender: FDA-Public Use
  Company Number: DE-BAYER-200717864GPV

PATIENT
  Sex: Male

DRUGS (1)
  1. BETASERON [Suspect]
     Indication: MULTIPLE SCLEROSIS
     Route: 058

REACTIONS (11)
  - ALOPECIA [None]
  - CHEST PAIN [None]
  - COGNITIVE DISORDER [None]
  - DIZZINESS [None]
  - HYPERSENSITIVITY [None]
  - MEMORY IMPAIRMENT [None]
  - NASAL CONGESTION [None]
  - NAUSEA [None]
  - TESTICULAR ATROPHY [None]
  - TESTICULAR DISORDER [None]
  - URINE FLOW DECREASED [None]
